FAERS Safety Report 24327099 (Version 3)
Quarter: 2024Q4

REPORT INFORMATION
  Report Type: Report from Study
  Country: US (occurrence: US)
  Receive Date: 20240917
  Receipt Date: 20241231
  Transmission Date: 20250114
  Serious: Yes (Hospitalization)
  Sender: UCB
  Company Number: US-UCBSA-2024027465

PATIENT
  Sex: Female
  Weight: 80.7 kg

DRUGS (4)
  1. ZILUCOPLAN [Suspect]
     Active Substance: ZILUCOPLAN
     Indication: Myasthenia gravis
     Dosage: 32.4 MILLIGRAM, ONCE DAILY (QD)
     Route: 058
     Dates: start: 20240503
  2. MYFORTIC [Concomitant]
     Active Substance: MYCOPHENOLATE SODIUM
     Indication: Product used for unknown indication
     Dosage: UNK
  3. LEVOTHYROXINE [Concomitant]
     Active Substance: LEVOTHYROXINE
     Indication: Product used for unknown indication
     Dosage: UNK
  4. MESTINON [Concomitant]
     Active Substance: PYRIDOSTIGMINE BROMIDE
     Indication: Product used for unknown indication
     Dosage: UNK

REACTIONS (5)
  - Fall [Unknown]
  - Weight increased [Unknown]
  - Increased appetite [Unknown]
  - Dysphagia [Not Recovered/Not Resolved]
  - Myalgia [Not Recovered/Not Resolved]

NARRATIVE: CASE EVENT DATE: 20240101
